FAERS Safety Report 7706773-4 (Version None)
Quarter: 2011Q3

REPORT INFORMATION
  Report Type: 
  Country: None (occurrence: None)
  Receive Date: 20110818
  Receipt Date: 20110811
  Transmission Date: 20111222
  Serious: Yes (Other)
  Sender: FDA-Public Use
  Company Number: 2011SP038085

PATIENT
  Sex: Male

DRUGS (2)
  1. HEPARIN [Concomitant]
  2. ORGARAN [Suspect]
     Indication: PRODUCT USED FOR UNKNOWN INDICATION
     Dosage: IV
     Route: 042

REACTIONS (3)
  - THROMBOSIS [None]
  - PLATELET COUNT DECREASED [None]
  - GENERALISED OEDEMA [None]
